FAERS Safety Report 24698427 (Version 2)
Quarter: 2024Q4

REPORT INFORMATION
  Report Type: Spontaneous
  Country: US (occurrence: US)
  Receive Date: 20241204
  Receipt Date: 20241217
  Transmission Date: 20250115
  Serious: Yes (Other)
  Sender: JOHNSON AND JOHNSON
  Company Number: US-JNJFOC-20241149220

PATIENT
  Sex: Female

DRUGS (3)
  1. XARELTO [Suspect]
     Active Substance: RIVAROXABAN
     Indication: Atrial fibrillation
     Route: 048
  2. XARELTO [Suspect]
     Active Substance: RIVAROXABAN
     Indication: Congenital mitral valve incompetence
  3. XARELTO [Suspect]
     Active Substance: RIVAROXABAN
     Indication: Heart valve incompetence

REACTIONS (12)
  - Haemorrhage [Not Recovered/Not Resolved]
  - Arterial rupture [Unknown]
  - Splinter [Unknown]
  - Contusion [Unknown]
  - Skin laceration [Unknown]
  - Impaired healing [Unknown]
  - Limb injury [Unknown]
  - Dermatitis [Unknown]
  - Peripheral swelling [Unknown]
  - Balance disorder [Unknown]
  - Skin atrophy [Unknown]
  - Varicose vein [Unknown]
